FAERS Safety Report 4832274-7 (Version None)
Quarter: 2005Q4

REPORT INFORMATION
  Report Type: 
  Country: None (occurrence: None)
  Receive Date: 20051119
  Receipt Date: 20050301
  Transmission Date: 20060501
  Serious: Yes (Congenital Anomaly)
  Sender: FDA-Public Use
  Company Number: GB-ABBOTT-05P-167-0292428-00

PATIENT
  Sex: Male

DRUGS (1)
  1. VALPROATE SODIUM [Suspect]
     Indication: DRUG EXPOSURE DURING PREGNANCY

REACTIONS (14)
  - AFFECT LABILITY [None]
  - COORDINATION ABNORMAL [None]
  - CRYING [None]
  - DYSGRAPHIA [None]
  - DYSLEXIA [None]
  - DYSPHASIA [None]
  - DYSPRAXIA [None]
  - FLAT FEET [None]
  - FOETAL VALPROATE SYNDROME [None]
  - HYPERACUSIS [None]
  - HYPOSPADIAS [None]
  - LEARNING DISORDER [None]
  - LIGAMENT LAXITY [None]
  - PHYSICAL EXAMINATION ABNORMAL [None]
